FAERS Safety Report 14438625 (Version 2)
Quarter: 2018Q1

REPORT INFORMATION
  Report Type: Spontaneous
  Country: US (occurrence: US)
  Receive Date: 20180125
  Receipt Date: 20180215
  Transmission Date: 20180509
  Serious: No
  Sender: FDA-Public Use
  Company Number: US-B.I. PHARMACEUTICALS,INC./RIDGEFIELD-2018-BI-003503

PATIENT
  Sex: Female

DRUGS (1)
  1. OFEV [Suspect]
     Active Substance: NINTEDANIB
     Indication: IDIOPATHIC PULMONARY FIBROSIS
     Dosage: FORMULATION: CAPSULEACTION(S) TAKEN DRUG WITHDRAWN
     Route: 048
     Dates: start: 201711, end: 201712

REACTIONS (3)
  - Malaise [Unknown]
  - Nausea [Unknown]
  - Weight decreased [Unknown]
